FAERS Safety Report 6804120-3 (Version None)
Quarter: 2010Q2

REPORT INFORMATION
  Report Type: 
  Country: None (occurrence: None)
  Receive Date: 20100628
  Receipt Date: 20070305
  Transmission Date: 20101027
  Serious: No
  Sender: FDA-Public Use
  Company Number: US-PFIZER INC-2006021623

PATIENT
  Sex: Female

DRUGS (2)
  1. GEODON [Suspect]
     Dates: start: 20051201, end: 20051204
  2. DEPAKOTE [Concomitant]
     Dates: end: 20061204

REACTIONS (3)
  - HEADACHE [None]
  - MIGRAINE [None]
  - TINNITUS [None]
